FAERS Safety Report 21367181 (Version 4)
Quarter: 2022Q4

REPORT INFORMATION
  Report Type: Report from Study
  Country: CH (occurrence: CH)
  Receive Date: 20220923
  Receipt Date: 20221028
  Transmission Date: 20230112
  Serious: Yes (Death, Other)
  Sender: FDA-Public Use
  Company Number: CH-ABBVIE-4128616

PATIENT
  Sex: Male

DRUGS (2)
  1. CARBIDOPA\LEVODOPA [Suspect]
     Active Substance: CARBIDOPA\LEVODOPA
     Indication: Parkinson^s disease
     Dosage: 1 CASSETTE PER DAY
     Route: 050
     Dates: start: 20120301, end: 2022
  2. CARBIDOPA\LEVODOPA [Suspect]
     Active Substance: CARBIDOPA\LEVODOPA
     Dosage: MD: 2.9 ML, CRD: 2.9 ML/H, CRN: 1.0 ML/H, ED: 1.7 ML, 24H THERAPY
     Route: 050
     Dates: start: 20220513, end: 20220918

REACTIONS (6)
  - Pneumonia [Fatal]
  - Palliative care [Fatal]
  - Pneumonia viral [Fatal]
  - Sepsis [Fatal]
  - General physical health deterioration [Fatal]
  - Cardiac disorder [Fatal]
